FAERS Safety Report 7455724-9 (Version None)
Quarter: 2011Q2

REPORT INFORMATION
  Report Type: 
  Country: None (occurrence: None)
  Receive Date: 20110503
  Receipt Date: 20110422
  Transmission Date: 20111010
  Serious: Yes (Death)
  Sender: FDA-Public Use
  Company Number: RU-ACTELION-A-CH2011-47943

PATIENT
  Age: 14 Year
  Sex: Male
  Weight: 54 kg

DRUGS (2)
  1. TRACLEER [Suspect]
     Indication: PULMONARY ARTERIAL HYPERTENSION
     Dosage: 125 MG, BID
     Route: 048
     Dates: start: 20101201, end: 20110422
  2. SILDENAFIL [Concomitant]
     Dosage: UNK
     Dates: start: 20101201

REACTIONS (3)
  - DYSPNOEA [None]
  - CARDIAC FAILURE ACUTE [None]
  - STENT PLACEMENT [None]
